FAERS Safety Report 16709048 (Version 1)
Quarter: 2019Q3

REPORT INFORMATION
  Report Type: Spontaneous
  Country: US (occurrence: US)
  Receive Date: 20190816
  Receipt Date: 20190816
  Transmission Date: 20191004
  Serious: Yes (Hospitalization)
  Sender: FDA-Public Use
  Company Number: US-ROCHE-2371687

PATIENT
  Sex: Female

DRUGS (1)
  1. ESBRIET [Suspect]
     Active Substance: PIRFENIDONE
     Indication: RHINITIS ALLERGIC
     Route: 048
     Dates: start: 20180525

REACTIONS (3)
  - Lung transplant [Recovered/Resolved]
  - Intentional product use issue [Unknown]
  - Off label use [Unknown]
